FAERS Safety Report 5141292-3 (Version None)
Quarter: 2006Q4

REPORT INFORMATION
  Report Type: 
  Country: None (occurrence: None)
  Receive Date: 20061101
  Receipt Date: 20061013
  Transmission Date: 20070319
  Serious: Yes (Hospitalization)
  Sender: FDA-Public Use
  Company Number: JP-NOVOPROD-257734

PATIENT
  Age: 17 Year
  Sex: Female
  Weight: 58 kg

DRUGS (8)
  1. NOVORAPID CHU [Suspect]
     Indication: DIABETES MELLITUS INSULIN-DEPENDENT
     Route: 058
     Dates: start: 20050604, end: 20060723
  2. PENFILL R CHU [Suspect]
     Indication: DIABETES MELLITUS INSULIN-DEPENDENT
     Route: 058
     Dates: end: 20060901
  3. PENFILL N CHU [Suspect]
     Indication: DIABETES MELLITUS INSULIN-DEPENDENT
     Route: 058
     Dates: end: 20060901
  4. LANTUS [Concomitant]
     Indication: DIABETES MELLITUS INSULIN-DEPENDENT
     Route: 058
     Dates: start: 20050604, end: 20060723
  5. HUMULIN 70/30 [Concomitant]
     Dates: start: 20060902, end: 20060915
  6. HUMACART R [Concomitant]
     Dates: start: 20060922
  7. HUMULIN N                          /00030504/ [Concomitant]
     Dates: start: 20060902
  8. HUMALOG                            /00030501/ [Concomitant]
     Dates: start: 20060915

REACTIONS (2)
  - HYPOGLYCAEMIA [None]
  - PNEUMONIA [None]
